FAERS Safety Report 6875680-1 (Version None)
Quarter: 2010Q3

REPORT INFORMATION
  Report Type: 
  Country: None (occurrence: None)
  Receive Date: 20100727
  Receipt Date: 20070730
  Transmission Date: 20110219
  Serious: Yes (Hospitalization, Other)
  Sender: FDA-Public Use
  Company Number: US-PFIZER INC-2006141639

PATIENT
  Sex: Male
  Weight: 81.6 kg

DRUGS (3)
  1. CELEBREX [Suspect]
     Indication: COLON CANCER
     Route: 048
     Dates: start: 20020719
  2. CELEBREX [Suspect]
     Indication: ARTHRITIS
  3. CELEBREX [Suspect]
     Indication: BACK PAIN

REACTIONS (2)
  - CEREBROVASCULAR ACCIDENT [None]
  - DEEP VEIN THROMBOSIS [None]
